FAERS Safety Report 18225206 (Version 3)
Quarter: 2020Q4

REPORT INFORMATION
  Report Type: Report from Study
  Country: None (occurrence: AT)
  Receive Date: 20200903
  Receipt Date: 20201009
  Transmission Date: 20210113
  Serious: Yes (Hospitalization, Other)
  Sender: FDA-Public Use
  Company Number: AT-ABBVIE-20K-009-3535397-00

PATIENT
  Age: 77 Year
  Sex: Male

DRUGS (2)
  1. DUODOPA [Suspect]
     Active Substance: CARBIDOPA\LEVODOPA
     Indication: PARKINSON^S DISEASE
     Dosage: 16H THERAPY: MD: 13ML, CR DAYTIME: 4.4ML/H, ED: 1.5ML
     Route: 050
     Dates: start: 20170822
  2. DUODOPA [Suspect]
     Active Substance: CARBIDOPA\LEVODOPA

REACTIONS (3)
  - Embedded device [Recovered/Resolved]
  - Seizure [Unknown]
  - Procedural complication [Not Recovered/Not Resolved]

NARRATIVE: CASE EVENT DATE: 20200831
